FAERS Safety Report 8691406 (Version 2)
Quarter: 2012Q4

REPORT INFORMATION
  Report Type: 
  Country: GB (occurrence: GB)
  Receive Date: 20120730
  Receipt Date: 20121029
  Transmission Date: 20130627
  Serious: Yes (Hospitalization)
  Sender: FDA-Public Use
  Company Number: GB-MPIJNJ-2012-04584

PATIENT

DRUGS (5)
  1. VELCADE [Suspect]
     Indication: MULTIPLE MYELOMA
     Dosage: 1.3 mg/m2, UNK
     Route: 058
     Dates: start: 20120504, end: 20120531
  2. BONEFOS [Concomitant]
     Indication: MULTIPLE MYELOMA
     Dosage: 800 mg, qd
  3. ACICLOVIR [Concomitant]
     Indication: ANTIVIRAL PROPHYLAXIS
     Dosage: 200 mg, bid
  4. PARACETAMOL [Concomitant]
     Indication: PAIN
     Dosage: UNK
  5. DEXAMETHASONE [Concomitant]
     Indication: MULTIPLE MYELOMA
     Dosage: 20 mg, bid

REACTIONS (3)
  - Drug ineffective [Not Recovered/Not Resolved]
  - Disease progression [Not Recovered/Not Resolved]
  - Renal impairment [Not Recovered/Not Resolved]
